FAERS Safety Report 7015767-6 (Version None)
Quarter: 2010Q3

REPORT INFORMATION
  Report Type: 
  Country: None (occurrence: None)
  Receive Date: 20100927
  Receipt Date: 20100621
  Transmission Date: 20110219
  Serious: Yes (Hospitalization)
  Sender: FDA-Public Use
  Company Number: US-ASTRAZENECA-2010SE28943

PATIENT
  Age: 63 Year
  Sex: Female
  Weight: 58.1 kg

DRUGS (1)
  1. ARIMIDEX [Suspect]
     Indication: BREAST CANCER
     Route: 048
     Dates: start: 20090210, end: 20100405

REACTIONS (6)
  - ARTHRALGIA [None]
  - CARPAL TUNNEL SYNDROME [None]
  - EPICONDYLITIS [None]
  - TEMPOROMANDIBULAR JOINT SYNDROME [None]
  - TRIGGER FINGER [None]
  - WEIGHT DECREASED [None]
